FAERS Safety Report 14241828 (Version 1)
Quarter: 2017Q4

REPORT INFORMATION
  Report Type: Spontaneous
  Country: CA (occurrence: CA)
  Receive Date: 20171201
  Receipt Date: 20171201
  Transmission Date: 20180321
  Serious: Yes (Hospitalization)
  Sender: FDA-Public Use
  Company Number: CA-TAKEDA-2017MPI010734

PATIENT
  Age: 58 Year
  Sex: Female
  Weight: 109 kg

DRUGS (3)
  1. NINLARO [Suspect]
     Active Substance: IXAZOMIB CITRATE
     Indication: PLASMA CELL MYELOMA
     Dosage: 4 MG, UNK
     Route: 065
     Dates: start: 20171107, end: 20171120
  2. DEXAMETHASONE. [Suspect]
     Active Substance: DEXAMETHASONE
     Indication: PLASMA CELL MYELOMA
     Dosage: 40 MG, UNK
     Route: 065
     Dates: start: 20171107
  3. CYCLOPHOSPHAMIDE. [Suspect]
     Active Substance: CYCLOPHOSPHAMIDE
     Indication: PLASMA CELL MYELOMA
     Dosage: 350 MG, UNK
     Route: 065
     Dates: start: 20171107

REACTIONS (4)
  - Platelet count decreased [Unknown]
  - Bacterial infection [Unknown]
  - Neutrophil count decreased [Unknown]
  - Off label use [Unknown]

NARRATIVE: CASE EVENT DATE: 20171107
